FAERS Safety Report 8888546 (Version 1)
Quarter: 2012Q4

REPORT INFORMATION
  Report Type: 
  Country: EC (occurrence: EC)
  Receive Date: 20121106
  Receipt Date: 20121106
  Transmission Date: 20130627
  Serious: Yes (Other)
  Sender: FDA-Public Use
  Company Number: PHHY2012EC100863

PATIENT
  Sex: Female

DRUGS (1)
  1. EXFORGE HCT [Suspect]
     Indication: HYPERTENSION
     Dosage: 1 DF (160/10/12.5 mg) daily
     Route: 048
     Dates: start: 20120329

REACTIONS (3)
  - Diabetes mellitus [Recovering/Resolving]
  - Cardiac disorder [Recovering/Resolving]
  - Ulcer [Recovering/Resolving]
